FAERS Safety Report 5429558-0 (Version None)
Quarter: 2007Q3

REPORT INFORMATION
  Report Type: 
  Country: None (occurrence: None)
  Receive Date: 20070829
  Receipt Date: 20070817
  Transmission Date: 20080115
  Serious: Yes (Other)
  Sender: FDA-Public Use
  Company Number: US-ROCHE-513157

PATIENT
  Sex: Male
  Weight: 2.1 kg

DRUGS (21)
  1. SAQUINAVIR [Suspect]
     Indication: SYSTEMIC ANTIVIRAL TREATMENT
  2. NELFINAVIR [Suspect]
     Indication: SYSTEMIC ANTIVIRAL TREATMENT
  3. FUZEON [Suspect]
     Indication: DRUG USE FOR UNKNOWN INDICATION
  4. ABACAVIR [Suspect]
     Indication: DRUG USE FOR UNKNOWN INDICATION
  5. DDI [Suspect]
     Indication: DRUG USE FOR UNKNOWN INDICATION
  6. SUSTIVA [Suspect]
     Indication: DRUG USE FOR UNKNOWN INDICATION
  7. 3TC [Suspect]
     Indication: DRUG USE FOR UNKNOWN INDICATION
  8. NEVIRAPINE [Suspect]
     Indication: DRUG USE FOR UNKNOWN INDICATION
  9. RITONAVIR [Suspect]
     Indication: DRUG USE FOR UNKNOWN INDICATION
  10. D4T [Suspect]
     Indication: DRUG USE FOR UNKNOWN INDICATION
  11. DDC [Suspect]
     Indication: DRUG USE FOR UNKNOWN INDICATION
  12. AZT [Suspect]
     Indication: DRUG USE FOR UNKNOWN INDICATION
  13. AMPRENAVIR [Suspect]
     Indication: DRUG USE FOR UNKNOWN INDICATION
  14. INDINAVIR [Suspect]
     Indication: DRUG USE FOR UNKNOWN INDICATION
  15. DELAVIRDINE [Suspect]
     Indication: DRUG USE FOR UNKNOWN INDICATION
  16. LOPINAVIR [Suspect]
     Indication: DRUG USE FOR UNKNOWN INDICATION
  17. TENOFOVIR DISOPROXIL FUMARATE [Suspect]
     Indication: DRUG USE FOR UNKNOWN INDICATION
  18. ATAZANAVIR SULFATE [Suspect]
     Indication: DRUG USE FOR UNKNOWN INDICATION
  19. EMTRIVA [Suspect]
     Indication: DRUG USE FOR UNKNOWN INDICATION
  20. LEXIVA [Suspect]
     Indication: DRUG USE FOR UNKNOWN INDICATION
  21. TIPRANAVIR [Suspect]
     Indication: DRUG USE FOR UNKNOWN INDICATION

REACTIONS (2)
  - ATRIOVENTRICULAR SEPTAL DEFECT [None]
  - TRISOMY 21 [None]
